FAERS Safety Report 23541802 (Version 1)
Quarter: 2024Q1

REPORT INFORMATION
  Report Type: Spontaneous
  Country: FR (occurrence: FR)
  Receive Date: 20240220
  Receipt Date: 20240220
  Transmission Date: 20240410
  Serious: Yes (Other)
  Sender: FDA-Public Use
  Company Number: FR-AFSSAPS-DJ2024000233

PATIENT
  Age: 92 Year
  Sex: Male
  Weight: 59 kg

DRUGS (3)
  1. METRONIDAZOLE [Suspect]
     Active Substance: METRONIDAZOLE
     Indication: Sepsis
     Dosage: 1500 MILLIGRAM, ONCE A DAY
     Route: 042
     Dates: start: 20231202, end: 20231220
  2. CEFEPIME HYDROCHLORIDE [Suspect]
     Active Substance: CEFEPIME HYDROCHLORIDE
     Indication: Sepsis
     Dosage: 6 GRAM, ONCE A DAY PARENTAL USE
     Route: 042
     Dates: start: 20231212, end: 20231220
  3. EUPANTOL [Concomitant]
     Active Substance: PANTOPRAZOLE SODIUM
     Indication: Ulcer
     Dosage: 80 MILLIGRAM, ONCE A DAY
     Route: 042
     Dates: start: 20231212

REACTIONS (2)
  - Hallucination, visual [Unknown]
  - Confusional state [Unknown]

NARRATIVE: CASE EVENT DATE: 20231214
